FAERS Safety Report 8575797-X (Version None)
Quarter: 2012Q3

REPORT INFORMATION
  Report Type: 
  Country: None (occurrence: None)
  Receive Date: 20120807
  Receipt Date: 20120803
  Transmission Date: 20120928
  Serious: Yes (Hospitalization)
  Sender: FDA-Public Use
  Company Number: US-AMGEN-USASP2012048759

PATIENT
  Age: 63 Year
  Sex: Female

DRUGS (2)
  1. METHOTREXATE SODIUM [Concomitant]
     Dosage: UNK
     Dates: start: 20010101
  2. ENBREL [Suspect]
     Indication: RHEUMATOID ARTHRITIS
     Dosage: 25 MG, 2 TIMES/WK
     Dates: start: 20010601

REACTIONS (11)
  - LACRIMATION INCREASED [None]
  - INCREASED TENDENCY TO BRUISE [None]
  - INJECTION SITE HAEMATOMA [None]
  - CHOLELITHIASIS [None]
  - EYELID MARGIN CRUSTING [None]
  - DRY SKIN [None]
  - HYPOAESTHESIA [None]
  - BLOOD PRESSURE ABNORMAL [None]
  - NAUSEA [None]
  - PARAESTHESIA [None]
  - PHOTOPHOBIA [None]
